FAERS Safety Report 9630529 (Version 1)
Quarter: 2013Q4

REPORT INFORMATION
  Report Type: Spontaneous
  Country: KR (occurrence: KR)
  Receive Date: 20131018
  Receipt Date: 20131018
  Transmission Date: 20140711
  Serious: Yes (Hospitalization, Disabling)
  Sender: FDA-Public Use
  Company Number: KR-INDICUS PHARMA-000108

PATIENT
  Age: 82 Year
  Sex: Female

DRUGS (9)
  1. ATORVASTATIN [Concomitant]
  2. GLICLAZIDE [Concomitant]
  3. VOGLIBOSE [Concomitant]
  4. THIOCTACID [Concomitant]
  5. METFORMIN HYDROCHLORIDE [Suspect]
     Indication: TYPE 2 DIABETES MELLITUS
  6. FENOFIBRATE [Concomitant]
  7. DEXIBUPROFEN [Concomitant]
     Indication: FRACTURE
  8. CIMETIDINE [Suspect]
     Indication: FRACTURE
  9. LORAZEPAM [Concomitant]

REACTIONS (3)
  - Lactic acidosis [Recovering/Resolving]
  - Pancreatitis acute [Recovering/Resolving]
  - Renal failure acute [Recovering/Resolving]
